FAERS Safety Report 8372465-4 (Version None)
Quarter: 2012Q2

REPORT INFORMATION
  Report Type: 
  Country: None (occurrence: None)
  Receive Date: 20120521
  Receipt Date: 20120511
  Transmission Date: 20120825
  Serious: Yes (Other)
  Sender: FDA-Public Use
  Company Number: US-BAYER-2012-033423

PATIENT
  Age: 26 Year
  Sex: Female

DRUGS (1)
  1. MIRENA [Suspect]
     Indication: CONTRACEPTION
     Dosage: 20 MCG/24HR, CONT
     Route: 015
     Dates: start: 20110913, end: 20120327

REACTIONS (12)
  - PELVIC PAIN [None]
  - PROCEDURAL PAIN [None]
  - OVARIAN CYST [None]
  - MENSTRUAL DISORDER [None]
  - MENORRHAGIA [None]
  - HEADACHE [None]
  - ACNE [None]
  - WEIGHT INCREASED [None]
  - MOOD ALTERED [None]
  - GENITAL HAEMORRHAGE [None]
  - POST PROCEDURAL HAEMORRHAGE [None]
  - MENSTRUATION IRREGULAR [None]
